FAERS Safety Report 7799501-8 (Version None)
Quarter: 2011Q4

REPORT INFORMATION
  Report Type: 
  Country: None (occurrence: None)
  Receive Date: 20111006
  Receipt Date: 20110926
  Transmission Date: 20120403
  Serious: Yes (Other)
  Sender: FDA-Public Use
  Company Number: PHEH2010US01810

PATIENT
  Sex: Male

DRUGS (2)
  1. ZOMETA [Suspect]
     Indication: MULTIPLE MYELOMA
  2. AREDIA [Suspect]
     Indication: MULTIPLE MYELOMA

REACTIONS (18)
  - FALL [None]
  - SWELLING [None]
  - OSTEONECROSIS OF JAW [None]
  - SUBDURAL HAEMATOMA [None]
  - ANHEDONIA [None]
  - LOCAL SWELLING [None]
  - GENERAL PHYSICAL HEALTH DETERIORATION [None]
  - PYREXIA [None]
  - HEAD INJURY [None]
  - PRIMARY SEQUESTRUM [None]
  - ANXIETY [None]
  - OPEN WOUND [None]
  - PROSTATE CANCER [None]
  - CHEST PAIN [None]
  - SINUS DISORDER [None]
  - TOOTH ABSCESS [None]
  - PNEUMONIA [None]
  - PAIN [None]
